FAERS Safety Report 6773938-8 (Version None)
Quarter: 2010Q2

REPORT INFORMATION
  Report Type: 
  Country: None (occurrence: None)
  Receive Date: 20100615
  Receipt Date: 20100615
  Transmission Date: 20101027
  Serious: Yes (Hospitalization, Other)
  Sender: FDA-Public Use
  Company Number: None

PATIENT
  Sex: Female
  Weight: 96.6162 kg

DRUGS (1)
  1. ZOCOR [Suspect]
     Dates: start: 20100401

REACTIONS (4)
  - DEEP VEIN THROMBOSIS [None]
  - DIALYSIS [None]
  - GUILLAIN-BARRE SYNDROME [None]
  - RHABDOMYOLYSIS [None]
